FAERS Safety Report 13306259 (Version 4)
Quarter: 2017Q4

REPORT INFORMATION
  Report Type: Report from Study
  Country: US (occurrence: BR)
  Receive Date: 20170308
  Receipt Date: 20171013
  Transmission Date: 20180320
  Serious: Yes (Other)
  Sender: FDA-Public Use
  Company Number: US-SUNOVION-2017SUN000980

PATIENT
  Sex: Male
  Weight: 84 kg

DRUGS (5)
  1. INDACATEROL AND GLYCOPYRROLATE [Suspect]
     Active Substance: GLYCOPYRROLATE\INDACATEROL MALEATE
     Indication: CHRONIC OBSTRUCTIVE PULMONARY DISEASE
     Dosage: 1 DF, QD
     Route: 055
     Dates: start: 201702
  2. OXIMAX [Concomitant]
     Active Substance: MOMETASONE FUROATE
     Dosage: 400 MG, QHS
  3. CLENIL COMPOSITUM HFA [Concomitant]
     Dosage: 200 MG, UNK
  4. ALENIA [Concomitant]
     Active Substance: BUDESONIDE\FORMOTEROL FUMARATE
     Dosage: UNK
  5. INDACATEROL AND GLYCOPYRROLATE [Suspect]
     Active Substance: GLYCOPYRROLATE\INDACATEROL MALEATE
     Indication: GASTROOESOPHAGEAL REFLUX DISEASE

REACTIONS (11)
  - Lung infection [Unknown]
  - Dysphonia [Recovered/Resolved]
  - Dysphonia [Recovering/Resolving]
  - Product use in unapproved indication [Unknown]
  - Total lung capacity decreased [Unknown]
  - Headache [Unknown]
  - Dizziness [Unknown]
  - Respiratory rate decreased [Unknown]
  - Malaise [Unknown]
  - Fatigue [Recovering/Resolving]
  - Expired product administered [Unknown]
